FAERS Safety Report 4639528-8 (Version None)
Quarter: 2005Q2

REPORT INFORMATION
  Report Type: 
  Country: None (occurrence: None)
  Receive Date: 20050419
  Receipt Date: 20050406
  Transmission Date: 20051028
  Serious: Yes (Hospitalization)
  Sender: FDA-Public Use
  Company Number: 2004-05126

PATIENT
  Age: 73 Year
  Sex: Female
  Weight: 86.6 kg

DRUGS (15)
  1. OXYTROL [Suspect]
     Indication: HYPERTONIC BLADDER
     Dosage: 1 PATCH, 2/WEEK, TRANSDERMAL
     Route: 062
     Dates: start: 20040825, end: 20041101
  2. OXYTROL [Suspect]
  3. PREVACID [Concomitant]
  4. ZESTRIL [Concomitant]
  5. CELEBREX [Concomitant]
  6. ANTIVERT [Concomitant]
  7. LIPITOR [Concomitant]
  8. IMDUR [Concomitant]
  9. PLAVIX [Concomitant]
  10. LASIX [Concomitant]
  11. ADVAIR (FLUTICASONE PROPIONATE) [Concomitant]
  12. PREDNISONE [Concomitant]
  13. ACETYLSALICYLIC ACID SRT [Concomitant]
  14. DARVOCET-N (PARACETAMOL, DEXTROPROPOXYPHENE NAPSILATE) [Concomitant]
  15. SINGULAIR [Concomitant]

REACTIONS (1)
  - CEREBROVASCULAR ACCIDENT [None]
